FAERS Safety Report 7377429-5 (Version None)
Quarter: 2011Q1

REPORT INFORMATION
  Report Type: 
  Country: None (occurrence: None)
  Receive Date: 20110316
  Receipt Date: 20110311
  Transmission Date: 20110831
  Serious: Yes (Life-Threatening)
  Sender: FDA-Public Use
  Company Number: 2011-0482

PATIENT
  Age: 51 Year
  Sex: Female
  Weight: 60 kg

DRUGS (3)
  1. RIFAMPICIN [Concomitant]
  2. TARGOCID [Concomitant]
  3. SOMATULINE AUTOGEL 60MG (LANREOTIDE AUTOGEL) (LANREOTIDE) (LANREOTIDE [Suspect]
     Indication: CARCINOID TUMOUR
     Dosage: 60 MG (60 MG, 1 IN 4 WK), PARENTERAL
     Route: 051
     Dates: start: 20100601

REACTIONS (1)
  - HYPOGLYCAEMIA [None]
